FAERS Safety Report 10011877 (Version 1)
Quarter: 2014Q1

REPORT INFORMATION
  Report Type: Spontaneous
  Country: DE (occurrence: DE)
  Receive Date: 20140314
  Receipt Date: 20140314
  Transmission Date: 20141002
  Serious: Yes (Death, Other)
  Sender: FDA-Public Use
  Company Number: DE-B.I. PHARMACEUTICALS,INC./RIDGEFIELD-2014-BI-10741GD

PATIENT
  Sex: 0

DRUGS (9)
  1. BUDESONIDE [Suspect]
     Indication: EXPOSURE DURING PREGNANCY
     Route: 064
  2. RANITIDINE [Suspect]
     Indication: EXPOSURE DURING PREGNANCY
     Route: 064
  3. PREDNISOLONE [Suspect]
     Indication: EXPOSURE DURING PREGNANCY
     Route: 064
  4. PREDNISOLONE [Suspect]
     Route: 064
  5. BUDESONIDE [Suspect]
     Indication: EXPOSURE DURING PREGNANCY
     Route: 064
  6. DIPHENHYDRAMINE [Suspect]
     Indication: EXPOSURE DURING PREGNANCY
     Route: 064
  7. ONDANSETRON [Suspect]
     Indication: EXPOSURE DURING PREGNANCY
     Route: 064
  8. FLUNITRAZEPAM [Suspect]
     Indication: EXPOSURE DURING PREGNANCY
     Route: 064
  9. VITAMIN C [Suspect]
     Indication: EXPOSURE DURING PREGNANCY
     Route: 064

REACTIONS (4)
  - Placental insufficiency [Fatal]
  - Foetal death [Fatal]
  - Foetal heart rate deceleration abnormality [Unknown]
  - Umbilical cord abnormality [Unknown]
